FAERS Safety Report 8456895-8 (Version None)
Quarter: 2012Q2

REPORT INFORMATION
  Report Type: 
  Country: None (occurrence: None)
  Receive Date: 20120621
  Receipt Date: 20120612
  Transmission Date: 20120825
  Serious: Yes (Other)
  Sender: FDA-Public Use
  Company Number: JP-VERTEX PHARMACEUTICALS INC.-AE-2012-004360

PATIENT
  Age: 65 Year
  Sex: Female

DRUGS (17)
  1. PEG-INTRON [Concomitant]
     Route: 058
     Dates: end: 20120516
  2. REBETOL [Concomitant]
     Route: 048
     Dates: start: 20120606
  3. PRIMPERAN TAB [Concomitant]
     Route: 048
     Dates: start: 20120319
  4. PRIMPERAN TAB [Concomitant]
     Route: 048
     Dates: end: 20120502
  5. TELAVIC (TELAPREVIR) [Suspect]
     Indication: HEPATITIS C
     Route: 048
     Dates: start: 20120315, end: 20120321
  6. PEG-INTRON [Concomitant]
     Route: 058
     Dates: start: 20120530, end: 20120530
  7. URSO 250 [Concomitant]
     Route: 048
  8. TELAVIC (TELAPREVIR) [Suspect]
     Route: 048
     Dates: start: 20120329
  9. PEG-INTRON [Concomitant]
     Route: 058
     Dates: start: 20120606
  10. PEG-INTRON [Concomitant]
     Route: 058
     Dates: start: 20120405
  11. LANSOPRAZOLE [Concomitant]
     Route: 048
     Dates: start: 20120319
  12. PEG-INTRON [Concomitant]
     Indication: HEPATITIS C
     Route: 058
     Dates: start: 20120315, end: 20120315
  13. PEG-INTRON [Concomitant]
     Route: 058
     Dates: start: 20120329, end: 20120329
  14. REBETOL [Concomitant]
     Route: 048
     Dates: start: 20120329, end: 20120424
  15. PROMACTA [Concomitant]
     Route: 048
     Dates: start: 20120509
  16. REBETOL [Concomitant]
     Indication: HEPATITIS C
     Route: 048
     Dates: start: 20120315, end: 20120321
  17. REBETOL [Concomitant]
     Route: 048
     Dates: start: 20120425, end: 20120606

REACTIONS (3)
  - NEUTROPHIL COUNT DECREASED [None]
  - PLATELET COUNT DECREASED [None]
  - WHITE BLOOD CELL COUNT DECREASED [None]
